FAERS Safety Report 13811713 (Version 1)
Quarter: 2017Q3

REPORT INFORMATION
  Report Type: Spontaneous
  Country: US (occurrence: US)
  Receive Date: 20170728
  Receipt Date: 20170728
  Transmission Date: 20171127
  Serious: Yes (Other)
  Sender: FDA-Public Use
  Company Number: US-ROCHE-774988

PATIENT
  Sex: Female

DRUGS (15)
  1. CINNABETIC II [Concomitant]
     Route: 065
  2. LANOXIN [Concomitant]
     Active Substance: DIGOXIN
     Route: 065
  3. ASTELIN [Concomitant]
     Active Substance: AZELASTINE HYDROCHLORIDE
     Dosage: 2 SPRAYS EACH NOSTRIL AS NEEDED
     Route: 045
  4. CRESTOR [Concomitant]
     Active Substance: ROSUVASTATIN CALCIUM
     Route: 065
  5. FUROSEMIDE. [Concomitant]
     Active Substance: FUROSEMIDE
     Route: 065
  6. LOPRESSOR [Concomitant]
     Active Substance: METOPROLOL TARTRATE
     Dosage: REPORTED AS LOPRESSOR TARTRATE
     Route: 065
  7. LEVOTHYROXINE SODIUM. [Concomitant]
     Active Substance: LEVOTHYROXINE SODIUM
     Route: 065
  8. CEFADROXIL. [Concomitant]
     Active Substance: CEFADROXIL
     Route: 048
  9. HYOSCYAMINE. [Concomitant]
     Active Substance: HYOSCYAMINE
     Indication: OESOPHAGEAL SPASM
     Dosage: 1/2 TO 1 TABLET TWICE DAILY
     Route: 065
  10. CALCIUM CITRATE/CHOLECALCIFEROL [Concomitant]
     Route: 065
  11. ACIDOPHILUS [Concomitant]
     Active Substance: LACTOBACILLUS ACIDOPHILUS
     Dosage: REPORTED AS ACIDOPHILUS PEARLS, FREQUENCY OTC ONE DAILY
     Route: 065
  12. PATADAY [Concomitant]
     Active Substance: OLOPATADINE HYDROCHLORIDE
     Indication: HYPERSENSITIVITY
     Dosage: FREQUENCY: ONE DROP EACH EYE AS NECESSARY
     Route: 047
  13. BONIVA [Suspect]
     Active Substance: IBANDRONATE SODIUM
     Indication: OSTEOPOROSIS
     Dosage: FORM:INJECTION, DOSE: 3MG/3 ML
     Route: 042
  14. TEKTURNA [Concomitant]
     Active Substance: ALISKIREN HEMIFUMARATE
     Dosage: 1 TABLET EVERY MORNING
     Route: 065
  15. VAGIFEM [Concomitant]
     Active Substance: ESTRADIOL
     Dosage: ROUTE: INTRA- VAGINAL, 2 TABLETS APPLIED TWICE WEEKLY TO VAGINAL AREA AS DIRECTED
     Route: 050

REACTIONS (2)
  - Peripheral swelling [Recovered/Resolved]
  - Injection site inflammation [Unknown]

NARRATIVE: CASE EVENT DATE: 20110502
